FAERS Safety Report 12526187 (Version 4)
Quarter: 2017Q1

REPORT INFORMATION
  Report Type: Spontaneous
  Country: US (occurrence: US)
  Receive Date: 20160705
  Receipt Date: 20170118
  Transmission Date: 20170428
  Serious: No
  Sender: FDA-Public Use
  Company Number: US-PFIZER INC-2016305643

PATIENT
  Age: 55 Year
  Sex: Female
  Weight: 90.7 kg

DRUGS (17)
  1. LYRICA [Suspect]
     Active Substance: PREGABALIN
     Dosage: 150 MG, UNK
     Dates: end: 201611
  2. BENZONATATE. [Concomitant]
     Active Substance: BENZONATATE
     Dosage: 100 MG, 3X/DAY
  3. RIZATRIPTAN. [Concomitant]
     Active Substance: RIZATRIPTAN
     Dosage: 10 MG, 1X/DAY
  4. ESCITALOPRAM [Concomitant]
     Active Substance: ESCITALOPRAM OXALATE
     Dosage: 20 MG, 1X/DAY
  5. PROMETHAZINE [Concomitant]
     Active Substance: PROMETHAZINE\PROMETHAZINE HYDROCHLORIDE
     Dosage: 25 MG, EVERY 6 HOURS, PRN
  6. DULOXETINE. [Concomitant]
     Active Substance: DULOXETINE
     Dosage: 30 MG, 2X/DAY
  7. TRAMADOL. [Concomitant]
     Active Substance: TRAMADOL
     Dosage: 50 MG, EVERY 4 HOURS
  8. CYCLOBENZAPRINE [Concomitant]
     Active Substance: CYCLOBENZAPRINE
     Dosage: 5 MG TABLETS 1 PO QAM, 1 PO Q MIDDAY, 2 PO QHS
     Route: 048
  9. DIAZEPAM. [Concomitant]
     Active Substance: DIAZEPAM
     Dosage: 5 MG, UNK
  10. LYRICA [Suspect]
     Active Substance: PREGABALIN
     Indication: COMPLEX REGIONAL PAIN SYNDROME
     Dosage: 150 MG, 2X/DAY
     Route: 048
     Dates: start: 20160503
  11. IBUPROFEN. [Concomitant]
     Active Substance: IBUPROFEN
     Dosage: 600 MG, 3 TIMES A DAY, PRN
  12. TIZANIDINE. [Concomitant]
     Active Substance: TIZANIDINE
     Dosage: 4 MG, 1X/DAY (HS)
  13. LORAZEPAM. [Concomitant]
     Active Substance: LORAZEPAM
     Dosage: 0.5 MG, UNK
     Dates: start: 20160406
  14. CLOTRIMAZOLE / BETAMETHASONE DIPROPIONATE [Concomitant]
     Dosage: UNK
  15. MONTELUKAST [Concomitant]
     Active Substance: MONTELUKAST SODIUM
     Dosage: 10 MG, (IN EVENING)1X/DAY
  16. TOPIRAMATE. [Concomitant]
     Active Substance: TOPIRAMATE
     Dosage: 75 MG, 2X/DAY
  17. ACYCLOVIR. [Concomitant]
     Active Substance: ACYCLOVIR
     Dosage: 400 MG, 5X DAILY AS NEEDED

REACTIONS (19)
  - Nausea [Recovered/Resolved]
  - Paraesthesia [Unknown]
  - Arthralgia [Unknown]
  - Feeling abnormal [Unknown]
  - Sinusitis [Recovering/Resolving]
  - Oropharyngeal pain [Recovered/Resolved]
  - Pain in extremity [Unknown]
  - Nausea [Unknown]
  - Asthenia [Recovering/Resolving]
  - Rhinorrhoea [Recovering/Resolving]
  - Product use issue [Unknown]
  - Hypoaesthesia [Unknown]
  - Decreased appetite [Recovered/Resolved]
  - Hypersomnia [Recovered/Resolved]
  - Cough [Recovered/Resolved]
  - Asthenia [Unknown]
  - Vomiting [Recovered/Resolved]
  - Dysphonia [Recovering/Resolving]
  - Rhinorrhoea [Recovered/Resolved]

NARRATIVE: CASE EVENT DATE: 20161113
